FAERS Safety Report 12549262 (Version 1)
Quarter: 2016Q3

REPORT INFORMATION
  Report Type: Report from Study
  Country: FR (occurrence: FR)
  Receive Date: 20160712
  Receipt Date: 20160712
  Transmission Date: 20161109
  Serious: Yes (Other)
  Sender: FDA-Public Use
  Company Number: FR-ACTELION-A-CH2016-138736

PATIENT
  Age: 47 Year
  Sex: Female
  Weight: 59 kg

DRUGS (1)
  1. VALCHLOR [Suspect]
     Active Substance: MECHLORETHAMINE
     Indication: MYCOSIS FUNGOIDES STAGE I
     Dosage: UNK, 3 TIMES PER WEEK
     Route: 061
     Dates: start: 20160511, end: 20160525

REACTIONS (9)
  - Lymphadenopathy [Not Recovered/Not Resolved]
  - Erythema [Recovering/Resolving]
  - Sleep disorder [Unknown]
  - Asthenia [Unknown]
  - Vision blurred [Unknown]
  - Vomiting [Unknown]
  - Skin erosion [Recovering/Resolving]
  - Impaired work ability [Unknown]
  - Pain [Not Recovered/Not Resolved]

NARRATIVE: CASE EVENT DATE: 20160513
